FAERS Safety Report 18581314 (Version 1)
Quarter: 2020Q4

REPORT INFORMATION
  Report Type: Spontaneous
  Country: US (occurrence: US)
  Receive Date: 20201204
  Receipt Date: 20201204
  Transmission Date: 20210114
  Serious: No
  Sender: FDA-Public Use
  Company Number: US-HARMONY BIOSCIENCES-2020HMY01312

PATIENT
  Sex: Female
  Weight: 97.05 kg

DRUGS (7)
  1. ESCITALOPRAM [Concomitant]
     Active Substance: ESCITALOPRAM OXALATE
  2. METHYLPHENIDATE. [Concomitant]
     Active Substance: METHYLPHENIDATE
  3. ALBUTEROL. [Concomitant]
     Active Substance: ALBUTEROL
  4. WAKIX [Suspect]
     Active Substance: PITOLISANT HYDROCHLORIDE
     Dosage: UNK ^LOWEST DOSE^
     Dates: start: 2020, end: 2020
  5. WAKIX [Suspect]
     Active Substance: PITOLISANT HYDROCHLORIDE
     Indication: NARCOLEPSY
     Dosage: UNK
     Route: 048
     Dates: start: 20200731, end: 2020
  6. LAMOTRIGINE. [Concomitant]
     Active Substance: LAMOTRIGINE
  7. SYMBICORT [Concomitant]
     Active Substance: BUDESONIDE\FORMOTEROL FUMARATE DIHYDRATE

REACTIONS (2)
  - Depression [Unknown]
  - Nightmare [Unknown]

NARRATIVE: CASE EVENT DATE: 2020
